FAERS Safety Report 24094245 (Version 3)
Quarter: 2025Q4

REPORT INFORMATION
  Report Type: Spontaneous
  Country: EU (occurrence: EU)
  Receive Date: 20240716
  Receipt Date: 20251028
  Transmission Date: 20260118
  Serious: No
  Sender: ALKEM
  Company Number: EU-ALKEM LABORATORIES LIMITED-DE-ALKEM-2024-12969

PATIENT
  Age: 23 Year
  Sex: Female

DRUGS (37)
  1. IBUPROFEN [Suspect]
     Active Substance: IBUPROFEN
     Indication: Product used for unknown indication
     Dosage: 400 MILLIGRAM
     Route: 065
     Dates: start: 20240313
  2. IBUPROFEN [Suspect]
     Active Substance: IBUPROFEN
     Dosage: 400 MILLIGRAM
     Route: 065
     Dates: start: 20240320
  3. IBUPROFEN [Suspect]
     Active Substance: IBUPROFEN
     Dosage: 400 MILLIGRAM
     Route: 065
     Dates: start: 20240515
  4. IBUPROFEN [Suspect]
     Active Substance: IBUPROFEN
     Dosage: 400 MILLIGRAM
     Route: 065
     Dates: start: 20240524
  5. IBUPROFEN [Suspect]
     Active Substance: IBUPROFEN
     Dosage: 400 MILLIGRAM
     Route: 065
     Dates: start: 20240527
  6. NAPROXEN [Suspect]
     Active Substance: NAPROXEN
     Indication: Product used for unknown indication
     Dosage: 500 MILLIGRAM
     Route: 065
     Dates: start: 20240105
  7. NAPROXEN [Suspect]
     Active Substance: NAPROXEN
     Dosage: 500 MILLIGRAM
     Route: 065
     Dates: start: 20240118
  8. NAPROXEN [Suspect]
     Active Substance: NAPROXEN
     Dosage: 500 MILLIGRAM
     Route: 065
     Dates: start: 20240119
  9. NAPROXEN [Suspect]
     Active Substance: NAPROXEN
     Dosage: 500 MILLIGRAM
     Route: 065
     Dates: start: 20240125
  10. NAPROXEN [Suspect]
     Active Substance: NAPROXEN
     Dosage: 500 MILLIGRAM
     Route: 065
     Dates: start: 20240126
  11. NAPROXEN [Suspect]
     Active Substance: NAPROXEN
     Dosage: 500 MILLIGRAM
     Route: 065
     Dates: start: 20240129
  12. NAPROXEN [Suspect]
     Active Substance: NAPROXEN
     Dosage: 500 MILLIGRAM
     Route: 065
     Dates: start: 20240131
  13. NAPROXEN [Suspect]
     Active Substance: NAPROXEN
     Dosage: 500 MILLIGRAM
     Route: 065
     Dates: start: 20240301
  14. NAPROXEN [Suspect]
     Active Substance: NAPROXEN
     Dosage: 100 MILLIGRAM (TABLET)
     Route: 065
     Dates: start: 20240316
  15. NAPROXEN [Suspect]
     Active Substance: NAPROXEN
     Dosage: 100 MILLIGRAM (TABLET)
     Route: 065
     Dates: start: 20240317
  16. NAPROXEN [Suspect]
     Active Substance: NAPROXEN
     Dosage: 500 MILLIGRAM
     Route: 065
     Dates: start: 20240320
  17. NAPROXEN [Suspect]
     Active Substance: NAPROXEN
     Dosage: 100 MILLIGRAM (TABLET)
     Route: 065
     Dates: start: 20240330
  18. NAPROXEN [Suspect]
     Active Substance: NAPROXEN
     Dosage: 100 MILLIGRAM (TABLET)
     Route: 065
     Dates: start: 20240505
  19. SUMATRIPTAN SUCCINATE [Suspect]
     Active Substance: SUMATRIPTAN SUCCINATE
     Indication: Product used for unknown indication
     Dosage: 100 MILLIGRAM (TABLET)
     Route: 065
     Dates: start: 20240316
  20. SUMATRIPTAN SUCCINATE [Suspect]
     Active Substance: SUMATRIPTAN SUCCINATE
     Dosage: 100 MILLIGRAM (TABLET)
     Route: 065
     Dates: start: 20240317
  21. SUMATRIPTAN SUCCINATE [Suspect]
     Active Substance: SUMATRIPTAN SUCCINATE
     Dosage: 100 MILLIGRAM (TABLET)
     Route: 065
     Dates: start: 20240330
  22. SUMATRIPTAN SUCCINATE [Suspect]
     Active Substance: SUMATRIPTAN SUCCINATE
     Dosage: 100 MILLIGRAM (TABLET)
     Route: 065
     Dates: start: 20240505
  23. SUMATRIPTAN SUCCINATE [Suspect]
     Active Substance: SUMATRIPTAN SUCCINATE
     Dosage: 100 MILLIGRAM (TABLET)
     Route: 065
     Dates: start: 20240510
  24. AMITRIPTYLINE [Suspect]
     Active Substance: AMITRIPTYLINE
     Indication: Product used for unknown indication
     Dosage: UNK
     Route: 065
  25. CALCITONIN GENE-RELATED PEPTIDE [Suspect]
     Active Substance: CALCITONIN GENE-RELATED PEPTIDE
     Indication: Product used for unknown indication
     Dosage: UNK
     Route: 065
  26. ELETRIPTAN [Suspect]
     Active Substance: ELETRIPTAN
     Indication: Product used for unknown indication
     Dosage: 500 MILLIGRAM (TABLET)
     Route: 065
     Dates: start: 20240105
  27. ELETRIPTAN [Suspect]
     Active Substance: ELETRIPTAN
     Dosage: 500 MILLIGRAM (TABLET)
     Route: 065
     Dates: start: 20240113
  28. ELETRIPTAN [Suspect]
     Active Substance: ELETRIPTAN
     Dosage: 500 MILLIGRAM (TABLET)
     Route: 065
     Dates: start: 20240118
  29. ELETRIPTAN [Suspect]
     Active Substance: ELETRIPTAN
     Dosage: 500 MILLIGRAM (TABLET)
     Route: 065
     Dates: start: 20240119
  30. ELETRIPTAN [Suspect]
     Active Substance: ELETRIPTAN
     Dosage: 500 MILLIGRAM (TABLET)
     Route: 065
     Dates: start: 20240125
  31. ELETRIPTAN [Suspect]
     Active Substance: ELETRIPTAN
     Dosage: 500 MILLIGRAM (TABLET)
     Route: 065
     Dates: start: 20240126
  32. ELETRIPTAN [Suspect]
     Active Substance: ELETRIPTAN
     Dosage: 500 MILLIGRAM (TABLET)
     Route: 065
     Dates: start: 20240129
  33. ZOLMITRIPTAN [Suspect]
     Active Substance: ZOLMITRIPTAN
     Indication: Product used for unknown indication
     Dosage: 5 MILLIGRAM (TABLET)
     Route: 065
     Dates: start: 20240508
  34. DULOXETINE [Concomitant]
     Active Substance: DULOXETINE
     Indication: Depression
     Dosage: UNK
     Route: 065
  35. PROPRANOLOL [Concomitant]
     Active Substance: PROPRANOLOL HYDROCHLORIDE
     Indication: Migraine
     Dosage: UNK
     Route: 065
  36. SERTRALINE HYDROCHLORIDE [Concomitant]
     Active Substance: SERTRALINE HYDROCHLORIDE
     Indication: Depression
     Dosage: UNK
     Route: 065
  37. TOPIRAMATE [Concomitant]
     Active Substance: TOPIRAMATE
     Indication: Product used for unknown indication
     Dosage: UNK
     Route: 065

REACTIONS (4)
  - Apathy [Unknown]
  - Migraine [Unknown]
  - Depression [Unknown]
  - Therapeutic product effect incomplete [Unknown]
